FAERS Safety Report 21501260 (Version 1)
Quarter: 2022Q4

REPORT INFORMATION
  Report Type: Spontaneous
  Country: US (occurrence: US)
  Receive Date: 20221025
  Receipt Date: 20221025
  Transmission Date: 20230113
  Serious: No
  Sender: FDA-Public Use
  Company Number: US-AMGEN-USASP2022182911

PATIENT

DRUGS (1)
  1. OTEZLA [Suspect]
     Active Substance: APREMILAST
     Indication: Psoriasis
     Dosage: UNK UNK, UNK(7TH REFILL FROM BRIDGE PROGRAM)
     Route: 048
     Dates: end: 20221019

REACTIONS (2)
  - Gastrointestinal disorder [Unknown]
  - Euphoric mood [Unknown]
